FAERS Safety Report 4757603-4 (Version None)
Quarter: 2005Q3

REPORT INFORMATION
  Report Type: 
  Country: None (occurrence: None)
  Receive Date: 20050831
  Receipt Date: 20050719
  Transmission Date: 20060218
  Serious: Yes (Hospitalization)
  Sender: FDA-Public Use
  Company Number: 2005UW11300

PATIENT
  Age: 62 Year
  Sex: Male

DRUGS (6)
  1. CRESTOR [Suspect]
     Route: 048
     Dates: start: 20040305, end: 20050726
  2. ZETIA [Interacting]
     Dates: start: 20040801
  3. LIPITOR [Concomitant]
  4. ZOLOFT [Concomitant]
  5. COENZYME Q10 [Concomitant]
  6. WELLBUTRIN XL [Concomitant]

REACTIONS (8)
  - DRUG INTERACTION [None]
  - FALL [None]
  - HEAT STROKE [None]
  - INJURY [None]
  - MUSCLE INJURY [None]
  - RENAL FAILURE [None]
  - RENAL TUBULAR NECROSIS [None]
  - RHABDOMYOLYSIS [None]
